FAERS Safety Report 8171819-9 (Version None)
Quarter: 2012Q1

REPORT INFORMATION
  Report Type: 
  Country: None (occurrence: None)
  Receive Date: 20120228
  Receipt Date: 20120223
  Transmission Date: 20120608
  Serious: Yes (Other)
  Sender: FDA-Public Use
  Company Number: CH-GLAXOSMITHKLINE-B0784113A

PATIENT
  Age: 89 Year
  Sex: Female

DRUGS (7)
  1. VITAMIN B-12 [Concomitant]
     Dosage: 1000MCG MONTHLY
     Route: 030
  2. GALANTAMINE HYDROBROMIDE [Suspect]
     Indication: DEMENTIA
     Dosage: 8MG PER DAY
     Route: 048
     Dates: start: 20120106
  3. ASPIRIN [Concomitant]
     Dosage: 100MG PER DAY
     Route: 048
  4. LAXOBERON [Concomitant]
     Dosage: 5DROP PER DAY
     Dates: start: 20120106
  5. COZAAR [Concomitant]
     Dosage: 100MG PER DAY
     Route: 048
  6. CALCIMAGON-D3 [Concomitant]
     Dosage: 500MG PER DAY
     Route: 048
     Dates: start: 20111228
  7. PAROXETINE HYDROCHLORIDE [Suspect]
     Indication: PRODUCT USED FOR UNKNOWN INDICATION
     Dosage: 10MG PER DAY
     Route: 048
     Dates: start: 20110101, end: 20120110

REACTIONS (2)
  - DECREASED APPETITE [None]
  - PERSONALITY DISORDER [None]
